FAERS Safety Report 6012720-6 (Version None)
Quarter: 2008Q4

REPORT INFORMATION
  Report Type: 
  Country: None (occurrence: None)
  Receive Date: 20081217
  Receipt Date: 20081205
  Transmission Date: 20090506
  Serious: Yes (Hospitalization)
  Sender: FDA-Public Use
  Company Number: B0504220A

PATIENT
  Age: 30 Year
  Sex: Female
  Weight: 50.5307 kg

DRUGS (3)
  1. ZYBAN [Suspect]
     Indication: NICOTINE DEPENDENCE
     Dosage: 150 MG / PER DAY/ ORAL
     Route: 048
     Dates: start: 20071125
  2. OLANZAPINE [Suspect]
     Indication: SCHIZOAFFECTIVE DISORDER
     Dosage: ORAL
     Route: 048
  3. ALPRAZOLAM [Concomitant]

REACTIONS (15)
  - AGGRESSION [None]
  - DELIRIUM [None]
  - DISINHIBITION [None]
  - DISSOCIATIVE DISORDER [None]
  - DRUG INTERACTION [None]
  - FLIGHT OF IDEAS [None]
  - INSOMNIA [None]
  - IRRITABILITY [None]
  - LEGAL PROBLEM [None]
  - MANIA [None]
  - PERSECUTORY DELUSION [None]
  - PSYCHIATRIC DECOMPENSATION [None]
  - PSYCHOMOTOR HYPERACTIVITY [None]
  - REFUSAL OF TREATMENT BY PATIENT [None]
  - THEFT [None]
